FAERS Safety Report 11604714 (Version 1)
Quarter: 2015Q4

REPORT INFORMATION
  Report Type: Report from Study
  Country: NL (occurrence: NL)
  Receive Date: 20151007
  Receipt Date: 20151007
  Transmission Date: 20160304
  Serious: Yes (Other)
  Sender: FDA-Public Use
  Company Number: NL-ROCHE-1641170

PATIENT
  Age: 87 Year
  Sex: Female
  Weight: 75 kg

DRUGS (14)
  1. LEVOTHYROXINE SODIUM. [Concomitant]
     Active Substance: LEVOTHYROXINE SODIUM
     Dosage: 0.5 TABLET OF 25 MCG QD
     Route: 048
  2. ACETYLSALICYLIC ACID [Concomitant]
     Active Substance: ASPIRIN
     Route: 048
  3. BARNIDIPINE [Concomitant]
     Active Substance: BARNIDIPINE
     Route: 048
  4. BUMETANIDE. [Concomitant]
     Active Substance: BUMETANIDE
     Route: 048
  5. MACROGOL [Concomitant]
     Active Substance: POLYETHYLENE GLYCOLS
     Dosage: MOVIC/MOLAX/LAXT/GEN, 1 SACHET QD
     Route: 048
  6. PANTOPRAZOLE [Concomitant]
     Active Substance: PANTOPRAZOLE SODIUM
     Route: 048
  7. CLOPIDOGREL [Concomitant]
     Active Substance: CLOPIDOGREL BISULFATE
     Route: 048
  8. DOXAZOSIN [Concomitant]
     Active Substance: DOXAZOSIN\DOXAZOSIN MESYLATE
     Route: 048
  9. NITROGLYCERIN. [Concomitant]
     Active Substance: NITROGLYCERIN
     Dosage: 0.4 MG/DO FL 200 DO
     Route: 060
  10. FUROSEMIDE. [Concomitant]
     Active Substance: FUROSEMIDE
     Route: 048
  11. LEVOTHYROXINE SODIUM. [Concomitant]
     Active Substance: LEVOTHYROXINE SODIUM
     Route: 048
  12. MIRCERA [Suspect]
     Active Substance: METHOXY POLYETHYLENE GLYCOL-EPOETIN BETA
     Indication: ANAEMIA
     Route: 058
     Dates: start: 20150626, end: 2015
  13. LACTULOSE. [Concomitant]
     Active Substance: LACTULOSE
     Dosage: 15 ML QD, 670 MG/ML (500 MG/G)
     Route: 048
  14. METOPROLOL SUCCINATE. [Concomitant]
     Active Substance: METOPROLOL SUCCINATE
     Route: 048

REACTIONS (1)
  - Ischaemic stroke [Not Recovered/Not Resolved]

NARRATIVE: CASE EVENT DATE: 20150816
